FAERS Safety Report 6933206-8 (Version None)
Quarter: 2010Q3

REPORT INFORMATION
  Report Type: 
  Country: None (occurrence: None)
  Receive Date: 20100820
  Receipt Date: 20100816
  Transmission Date: 20110219
  Serious: Yes (Other)
  Sender: FDA-Public Use
  Company Number: US-ASTRAZENECA-2009UW09580

PATIENT
  Age: 30 Year
  Sex: Female
  Weight: 90.3 kg

DRUGS (11)
  1. SEROQUEL [Suspect]
     Indication: DEPRESSION
     Dosage: 200-1200 MG
     Route: 048
     Dates: start: 19900101, end: 20070101
  2. SEROQUEL [Suspect]
     Indication: BIPOLAR DISORDER
     Dosage: 200-1200 MG
     Route: 048
     Dates: start: 19900101, end: 20070101
  3. SEROQUEL [Suspect]
     Indication: INSOMNIA
     Dosage: 200-1200 MG
     Route: 048
     Dates: start: 19900101, end: 20070101
  4. SEROQUEL [Suspect]
     Dosage: 400 MG TO 1200 MG
     Route: 048
     Dates: start: 20010101, end: 20071201
  5. SEROQUEL [Suspect]
     Dosage: 400 MG TO 1200 MG
     Route: 048
     Dates: start: 20010101, end: 20071201
  6. SEROQUEL [Suspect]
     Dosage: 400 MG TO 1200 MG
     Route: 048
     Dates: start: 20010101, end: 20071201
  7. ABILIFY [Concomitant]
     Dates: start: 20020101
  8. GEODON [Concomitant]
     Dates: start: 20020101
  9. HALDOL [Concomitant]
     Dates: start: 20030101
  10. LAMICTAL [Concomitant]
  11. KLONOPIN [Concomitant]

REACTIONS (9)
  - ASTHMA [None]
  - CHEST PAIN [None]
  - CONVULSION [None]
  - GASTRIC DISORDER [None]
  - GASTROINTESTINAL DISORDER [None]
  - ILL-DEFINED DISORDER [None]
  - MENTAL DISORDER [None]
  - SUICIDAL IDEATION [None]
  - TYPE 2 DIABETES MELLITUS [None]
